FAERS Safety Report 23577634 (Version 1)
Quarter: 2024Q1

REPORT INFORMATION
  Report Type: Report from Study
  Country: US (occurrence: None)
  Receive Date: 20240228
  Receipt Date: 20240228
  Transmission Date: 20240409
  Serious: Yes (Other)
  Sender: FDA-Public Use
  Company Number: 2024A043922

PATIENT
  Sex: Female

DRUGS (1)
  1. LYNPARZA [Suspect]
     Active Substance: OLAPARIB
     Indication: Ovarian cancer
     Route: 048

REACTIONS (7)
  - Renal impairment [Unknown]
  - Toxicity to various agents [Unknown]
  - Chest pain [Unknown]
  - Dehydration [Unknown]
  - Urinary tract infection [Unknown]
  - Nausea [Unknown]
  - Vomiting [Unknown]
